FAERS Safety Report 8105777-X (Version None)
Quarter: 2012Q1

REPORT INFORMATION
  Report Type: 
  Country: None (occurrence: None)
  Receive Date: 20120201
  Receipt Date: 20120127
  Transmission Date: 20120608
  Serious: No
  Sender: FDA-Public Use
  Company Number: US-PFIZER INC-2012023400

PATIENT
  Sex: Female
  Weight: 49.9 kg

DRUGS (5)
  1. AROMASIN [Suspect]
     Indication: BREAST CANCER
     Dosage: 25 MG, DAILY
     Route: 048
     Dates: start: 20111101, end: 20111201
  2. ACETYLSALICYLIC ACID [Concomitant]
     Dosage: 81 MG, 1X/DAY
  3. COSAMIN DS [Concomitant]
     Indication: ARTHROPATHY
     Dosage: ONE CAPSULE DAILY
     Route: 048
  4. ANASTROZOLE [Suspect]
     Indication: BREAST CANCER
     Dosage: 5 MG, DAILY
     Route: 048
     Dates: start: 20110701, end: 20111001
  5. CALCIUM [Concomitant]
     Dosage: UNK

REACTIONS (8)
  - PARAESTHESIA [None]
  - INSOMNIA [None]
  - DRUG DOSE OMISSION [None]
  - ANXIETY [None]
  - FATIGUE [None]
  - DEPRESSION [None]
  - ABNORMAL BEHAVIOUR [None]
  - APATHY [None]
